FAERS Safety Report 5880093-5 (Version None)
Quarter: 2008Q3

REPORT INFORMATION
  Report Type: 
  Country: None (occurrence: None)
  Receive Date: 20080912
  Receipt Date: 20080902
  Transmission Date: 20090109
  Serious: Yes (Hospitalization)
  Sender: FDA-Public Use
  Company Number: ES-PFIZER INC-2008072790

PATIENT
  Age: 58 Year
  Sex: Male

DRUGS (3)
  1. VIBRAMICINA [Suspect]
     Route: 048
     Dates: start: 20080428, end: 20080512
  2. AMOXICILLIN + CLAVULANATE POTASSIUM [Suspect]
     Route: 048
     Dates: start: 20080428, end: 20080512
  3. KETOPROFEN [Suspect]
     Dosage: FREQ:PRN
     Route: 048
     Dates: start: 20080101

REACTIONS (2)
  - HEPATITIS [None]
  - PRURITUS [None]
